FAERS Safety Report 8083258-X (Version None)
Quarter: 2012Q1

REPORT INFORMATION
  Report Type: 
  Country: None (occurrence: None)
  Receive Date: 20120127
  Receipt Date: 20110303
  Transmission Date: 20120608
  Serious: Yes (Hospitalization)
  Sender: FDA-Public Use
  Company Number: US-ABBOTT-11P-163-0709390-00

PATIENT
  Age: 44 Year
  Sex: Male

DRUGS (3)
  1. HUMIRA [Suspect]
     Route: 058
     Dates: start: 20090101, end: 20110101
  2. IMODIUM A-D [Concomitant]
     Indication: CROHN'S DISEASE
     Dosage: 4 TABS DAILY
     Route: 048
  3. HUMIRA [Suspect]
     Indication: CROHN'S DISEASE
     Route: 058
     Dates: start: 20110201

REACTIONS (2)
  - COUGH [None]
  - RESPIRATORY TRACT INFECTION [None]
